FAERS Safety Report 21699121 (Version 8)
Quarter: 2023Q2

REPORT INFORMATION
  Report Type: Report from Study
  Country: US (occurrence: US)
  Receive Date: 20221208
  Receipt Date: 20230510
  Transmission Date: 20230722
  Serious: No
  Sender: FDA-Public Use
  Company Number: US-002147023-NVSC2022US284758

PATIENT
  Sex: Female

DRUGS (2)
  1. ENTRESTO [Suspect]
     Active Substance: SACUBITRIL\VALSARTAN
     Indication: Product used for unknown indication
     Dosage: 1 DOSAGE FORM, BID (49/51 MG)
     Route: 048
  2. ENTRESTO [Suspect]
     Active Substance: SACUBITRIL\VALSARTAN
     Dosage: 1 DOSAGE FORM, BID (97/103 MG)
     Route: 048

REACTIONS (9)
  - Muscle spasms [Unknown]
  - Swelling [Unknown]
  - Heart rate increased [Unknown]
  - Weight increased [Unknown]
  - Pulmonary mass [Unknown]
  - Peripheral swelling [Recovering/Resolving]
  - Hypertension [Recovering/Resolving]
  - Cough [Unknown]
  - Dizziness [Recovering/Resolving]
